FAERS Safety Report 9731618 (Version 1)
Quarter: 2013Q4

REPORT INFORMATION
  Report Type: Spontaneous
  Country: FI (occurrence: None)
  Receive Date: 20131203
  Receipt Date: 20131203
  Transmission Date: 20140711
  Serious: Yes (Death)
  Sender: FDA-Public Use
  Company Number: 2013P1021353

PATIENT
  Age: 70 Year
  Sex: Male

DRUGS (4)
  1. DIAZEPAM [Suspect]
     Indication: EPILEPSY
     Dates: end: 2006
  2. TRIMETHOPRIM [Suspect]
     Dates: start: 20060604, end: 20060605
  3. OXAZEPAM [Suspect]
     Dates: start: 20060604, end: 20060605
  4. TEMAZEPAM [Suspect]
     Dates: start: 20060604, end: 20060605

REACTIONS (5)
  - Poisoning deliberate [None]
  - Loss of consciousness [None]
  - Dyspnoea [None]
  - Sudden death [None]
  - Victim of homicide [None]
